FAERS Safety Report 7900031-0 (Version None)
Quarter: 2011Q4

REPORT INFORMATION
  Report Type: 
  Country: None (occurrence: None)
  Receive Date: 20111108
  Receipt Date: 20111031
  Transmission Date: 20120403
  Serious: Yes (Life-Threatening, Other)
  Sender: FDA-Public Use
  Company Number: GR-BIOGENIDEC-2011BI016915

PATIENT
  Age: 44 Year
  Sex: Female
  Weight: 70 kg

DRUGS (5)
  1. EFFEXOR [Concomitant]
  2. NEURONTIN [Concomitant]
  3. TYSABRI [Suspect]
     Indication: MULTIPLE SCLEROSIS
     Route: 042
     Dates: start: 20071204, end: 20110427
  4. MIOREL [Concomitant]
  5. EFFEXOR [Concomitant]

REACTIONS (1)
  - ENDOMETRIAL CANCER [None]
